FAERS Safety Report 21594557 (Version 2)
Quarter: 2023Q2

REPORT INFORMATION
  Report Type: Spontaneous
  Country: US (occurrence: US)
  Receive Date: 20221115
  Receipt Date: 20230501
  Transmission Date: 20230722
  Serious: Yes (Hospitalization, Other)
  Sender: FDA-Public Use
  Company Number: US-BRISTOL-MYERS SQUIBB COMPANY-2022-136228

PATIENT
  Age: 43 Year
  Sex: Male

DRUGS (2)
  1. ELIQUIS [Suspect]
     Active Substance: APIXABAN
     Indication: Product used for unknown indication
     Route: 048
  2. VANCOMYCIN [Suspect]
     Active Substance: VANCOMYCIN
     Indication: Osteomyelitis
     Route: 042
     Dates: start: 20230222, end: 20230328

REACTIONS (6)
  - Hand fracture [Unknown]
  - Lower limb fracture [Unknown]
  - Fall [Unknown]
  - Accident [Unknown]
  - Acute kidney injury [Unknown]
  - Osteomyelitis [Unknown]
